FAERS Safety Report 23439097 (Version 1)
Quarter: 2024Q1

REPORT INFORMATION
  Report Type: Spontaneous
  Country: AU (occurrence: AU)
  Receive Date: 20240124
  Receipt Date: 20240124
  Transmission Date: 20240410
  Serious: Yes (Hospitalization, Other)
  Sender: FDA-Public Use
  Company Number: AU-BIOGEN-2023BI01222702

PATIENT
  Age: 62 Year
  Sex: Female

DRUGS (6)
  1. TYSABRI [Suspect]
     Active Substance: NATALIZUMAB
     Indication: Product used for unknown indication
     Route: 050
  2. KESIMPTA [Suspect]
     Active Substance: OFATUMUMAB
     Indication: Relapsing-remitting multiple sclerosis
     Route: 050
     Dates: start: 20230419
  3. KESIMPTA [Suspect]
     Active Substance: OFATUMUMAB
     Route: 050
     Dates: start: 20230426
  4. KESIMPTA [Suspect]
     Active Substance: OFATUMUMAB
     Route: 050
     Dates: start: 20230502
  5. KESIMPTA [Suspect]
     Active Substance: OFATUMUMAB
     Route: 050
  6. KESIMPTA [Suspect]
     Active Substance: OFATUMUMAB
     Route: 050
     Dates: start: 20230721

REACTIONS (3)
  - Vestibular migraine [Unknown]
  - Cataract [Unknown]
  - Inappropriate schedule of product administration [Unknown]

NARRATIVE: CASE EVENT DATE: 20230502
